FAERS Safety Report 5324946-5 (Version None)
Quarter: 2007Q2

REPORT INFORMATION
  Report Type: 
  Country: None (occurrence: None)
  Receive Date: 20070510
  Receipt Date: 20070510
  Transmission Date: 20071010
  Serious: Yes (Disabling)
  Sender: FDA-Public Use
  Company Number: None

PATIENT
  Age: 91 Year
  Sex: Female
  Weight: 58.514 kg

DRUGS (2)
  1. LEVAQUIN [Suspect]
     Indication: UROSEPSIS
     Dosage: 750 X1 PO
     Route: 048
     Dates: start: 20070503, end: 20070507
  2. LEVAQUIN [Suspect]
     Dosage: 500 MG  QOD PO
     Route: 048

REACTIONS (1)
  - RENAL FAILURE ACUTE [None]
